FAERS Safety Report 16636952 (Version 2)
Quarter: 2019Q4

REPORT INFORMATION
  Report Type: Spontaneous
  Country: CN (occurrence: CN)
  Receive Date: 20190726
  Receipt Date: 20191126
  Transmission Date: 20200122
  Serious: Yes (Hospitalization)
  Sender: FDA-Public Use
  Company Number: CN-ASTRAZENECA-2019SF06331

PATIENT
  Age: 25477 Day
  Sex: Male
  Weight: 60 kg

DRUGS (1)
  1. BRILINTA [Suspect]
     Active Substance: TICAGRELOR
     Indication: ANTIPLATELET THERAPY
     Route: 048
     Dates: start: 20190622, end: 20190707

REACTIONS (2)
  - Dyspnoea [Recovering/Resolving]
  - Left ventricular failure [Unknown]

NARRATIVE: CASE EVENT DATE: 20190623
